FAERS Safety Report 17565405 (Version 1)
Quarter: 2020Q1

REPORT INFORMATION
  Report Type: Spontaneous
  Country: US (occurrence: US)
  Receive Date: 20200320
  Receipt Date: 20200320
  Transmission Date: 20200409
  Serious: No
  Sender: FDA-Public Use
  Company Number: US-PFIZER INC-2020118769

PATIENT
  Age: 82 Year
  Sex: Male
  Weight: 79.38 kg

DRUGS (2)
  1. ADVIL [Suspect]
     Active Substance: IBUPROFEN
     Indication: ARTHROPATHY
  2. ADVIL [Suspect]
     Active Substance: IBUPROFEN
     Indication: PAIN IN EXTREMITY
     Dosage: 400 MG, 1X/DAY
     Route: 048

REACTIONS (3)
  - Product taste abnormal [Unknown]
  - Glossodynia [Recovered/Resolved]
  - Poor quality product administered [Unknown]

NARRATIVE: CASE EVENT DATE: 20200318
